FAERS Safety Report 4515496-4 (Version None)
Quarter: 2004Q4

REPORT INFORMATION
  Report Type: 
  Country: None (occurrence: None)
  Receive Date: 20041126
  Receipt Date: 20041112
  Transmission Date: 20050328
  Serious: Yes (Hospitalization)
  Sender: FDA-Public Use
  Company Number: 207751

PATIENT
  Age: 57 Year
  Sex: Female
  Weight: 54.4316 kg

DRUGS (10)
  1. AVONEX [Suspect]
     Indication: MULTIPLE SCLEROSIS
     Dosage: QW; IM
     Route: 030
     Dates: start: 19990101, end: 20040301
  2. POTASSIUM [Concomitant]
  3. PRENATAL VITAMIN [Concomitant]
  4. HYDROCHLOROTHIAZIDE [Concomitant]
  5. NIFEREX [Concomitant]
  6. PROVIGIL [Concomitant]
  7. HYDROCODONE [Concomitant]
  8. FLUOXETINE [Concomitant]
  9. SINGULAIR [Concomitant]
  10. XANAX [Concomitant]

REACTIONS (4)
  - CEREBROVASCULAR ACCIDENT [None]
  - GASTRIC ULCER [None]
  - HYPERTENSION [None]
  - MYOCARDIAL INFARCTION [None]
